FAERS Safety Report 5452930-X (Version None)
Quarter: 2007Q3

REPORT INFORMATION
  Report Type: 
  Country: None (occurrence: None)
  Receive Date: 20070914
  Receipt Date: 20070903
  Transmission Date: 20080115
  Serious: Yes (Other)
  Sender: FDA-Public Use
  Company Number: JP-ROCHE-514732

PATIENT
  Sex: Male

DRUGS (3)
  1. VESANOID [Suspect]
     Indication: DRUG USE FOR UNKNOWN INDICATION
     Route: 048
  2. FAMOTIDINE [Concomitant]
  3. ALLOPURINOL [Concomitant]
     Route: 048

REACTIONS (1)
  - NEUTROPHIL COUNT DECREASED [None]
